FAERS Safety Report 4690158-1 (Version None)
Quarter: 2005Q2

REPORT INFORMATION
  Report Type: 
  Country: None (occurrence: None)
  Receive Date: 20050613
  Receipt Date: 20050602
  Transmission Date: 20051028
  Serious: Yes (Hospitalization, Disabling)
  Sender: FDA-Public Use
  Company Number: OMPQ-NO-0506S-0846

PATIENT
  Age: 68 Year
  Sex: Male

DRUGS (1)
  1. OMNIPAQUE 140 [Suspect]
     Indication: BLADDER CANCER
     Dosage: 100 ML, SINGLE DOSE, I.V.
     Route: 042
     Dates: start: 20050502, end: 20050602

REACTIONS (9)
  - BLOOD PRESSURE SYSTOLIC DECREASED [None]
  - CARDIO-RESPIRATORY ARREST [None]
  - COUGH [None]
  - DYSAESTHESIA [None]
  - FALL [None]
  - HEAD INJURY [None]
  - LIGAMENT DISORDER [None]
  - LOSS OF CONSCIOUSNESS [None]
  - QUADRIPLEGIA [None]
